FAERS Safety Report 4935119-X (Version None)
Quarter: 2006Q1

REPORT INFORMATION
  Report Type: 
  Country: None (occurrence: None)
  Receive Date: 20060306
  Receipt Date: 20060306
  Transmission Date: 20060701
  Serious: Yes (Hospitalization, Other)
  Sender: FDA-Public Use
  Company Number: None

PATIENT
  Age: 58 Year
  Sex: Female
  Weight: 68.4932 kg

DRUGS (1)
  1. ZELNORM [Suspect]
     Indication: IRRITABLE BOWEL SYNDROME
     Dosage: 6 MG  1 TABLET/PER DAY   PO
     Route: 048
     Dates: start: 20030101, end: 20051205

REACTIONS (8)
  - BLOOD FOLATE DECREASED [None]
  - DIARRHOEA [None]
  - FAECAL INCONTINENCE [None]
  - GASTROINTESTINAL DISORDER [None]
  - HEPATIC ENZYME INCREASED [None]
  - PAIN [None]
  - RHEUMATOID ARTHRITIS [None]
  - VITAMIN B12 DECREASED [None]
